FAERS Safety Report 18452689 (Version 1)
Quarter: 2020Q4

REPORT INFORMATION
  Report Type: Spontaneous
  Country: JP (occurrence: JP)
  Receive Date: 20201102
  Receipt Date: 20201102
  Transmission Date: 20210114
  Serious: Yes (Other)
  Sender: FDA-Public Use
  Company Number: JP-PFIZER INC-2020418576

PATIENT

DRUGS (1)
  1. LYRICA [Suspect]
     Active Substance: PREGABALIN
     Dosage: UNK
     Route: 048

REACTIONS (12)
  - Speech disorder [Unknown]
  - Platelet count decreased [Unknown]
  - Pyrexia [Unknown]
  - Thrombocytopenia [Unknown]
  - Blood alkaline phosphatase increased [Unknown]
  - Tremor [Unknown]
  - Withdrawal syndrome [Unknown]
  - Somnolence [Unknown]
  - Delirium [Unknown]
  - Chills [Unknown]
  - Overdose [Unknown]
  - Pain [Unknown]
